FAERS Safety Report 4521127-X (Version None)
Quarter: 2004Q4

REPORT INFORMATION
  Report Type: 
  Country: None (occurrence: None)
  Receive Date: 20041208
  Receipt Date: 20041202
  Transmission Date: 20050328
  Serious: Yes (Hospitalization)
  Sender: FDA-Public Use
  Company Number: US-ROCHE-387925

PATIENT
  Age: 29 Year
  Sex: Male

DRUGS (2)
  1. XENICAL [Suspect]
     Indication: DRUG USE FOR UNKNOWN INDICATION
     Route: 065
  2. CONCERTA [Suspect]
     Route: 048

REACTIONS (6)
  - CHEST DISCOMFORT [None]
  - HYPERHIDROSIS [None]
  - NAUSEA [None]
  - SKIN WARM [None]
  - TACHYCARDIA [None]
  - VOMITING [None]
